FAERS Safety Report 18979358 (Version 1)
Quarter: 2021Q1

REPORT INFORMATION
  Report Type: Spontaneous
  Country: US (occurrence: US)
  Receive Date: 20210308
  Receipt Date: 20210308
  Transmission Date: 20210420
  Serious: No
  Sender: FDA-Public Use
  Company Number: US-CIPLA LTD.-2020US01159

PATIENT

DRUGS (1)
  1. SERTRALINE [Suspect]
     Active Substance: SERTRALINE HYDROCHLORIDE
     Indication: PRODUCT USED FOR UNKNOWN INDICATION
     Dosage: 50 MILLIGRAM, QD, (BY MOUTH ONE TIME AT NIGHT)
     Route: 048
     Dates: start: 20200201

REACTIONS (5)
  - Diarrhoea [Recovered/Resolved]
  - Muscle rigidity [Recovered/Resolved with Sequelae]
  - Nausea [Recovered/Resolved]
  - Decreased appetite [Recovered/Resolved]
  - Balance disorder [Recovering/Resolving]

NARRATIVE: CASE EVENT DATE: 20200202
